FAERS Safety Report 5704126-1 (Version None)
Quarter: 2008Q2

REPORT INFORMATION
  Report Type: 
  Country: None (occurrence: None)
  Receive Date: 20080414
  Receipt Date: 20080403
  Transmission Date: 20081010
  Serious: Yes (Life-Threatening)
  Sender: FDA-Public Use
  Company Number: FR-JNJFOC-20080401706

PATIENT
  Age: 31 Year
  Sex: Male

DRUGS (6)
  1. REMICADE [Suspect]
     Route: 042
  2. REMICADE [Suspect]
     Route: 042
  3. REMICADE [Suspect]
     Indication: CROHN'S DISEASE
     Route: 042
  4. IMUREL [Suspect]
     Indication: CROHN'S DISEASE
     Route: 048
  5. HYDROCORTISONE [Concomitant]
  6. HYDROCORTISONE [Concomitant]
     Indication: CROHN'S DISEASE

REACTIONS (3)
  - BASAL CELL CARCINOMA [None]
  - PAPILLOMA [None]
  - PRURITUS [None]
